FAERS Safety Report 22232544 (Version 1)
Quarter: 2023Q2

REPORT INFORMATION
  Report Type: Spontaneous
  Country: US (occurrence: None)
  Receive Date: 20230420
  Receipt Date: 20230420
  Transmission Date: 20230722
  Serious: No
  Sender: FDA-Public Use
  Company Number: US-ROCHE-3045585

PATIENT
  Sex: Female

DRUGS (1)
  1. ESBRIET [Suspect]
     Active Substance: PIRFENIDONE
     Indication: Pulmonary fibrosis
     Dosage: 267MG 3 TABS 3X DAILY
     Route: 048
     Dates: start: 20220103

REACTIONS (3)
  - Nasal congestion [Unknown]
  - Secretion discharge [Unknown]
  - Upper-airway cough syndrome [Unknown]
